FAERS Safety Report 25048821 (Version 1)
Quarter: 2025Q1

REPORT INFORMATION
  Report Type: Spontaneous
  Country: CN (occurrence: CN)
  Receive Date: 20250307
  Receipt Date: 20250307
  Transmission Date: 20250408
  Serious: Yes (Other)
  Sender: ABBVIE
  Company Number: CN-ABBVIE-6163842

PATIENT
  Age: 57 Year
  Sex: Female
  Weight: 42 kg

DRUGS (2)
  1. VENETOCLAX [Suspect]
     Active Substance: VENETOCLAX
     Indication: Leukaemia
     Dosage: 0.2 GRAM
     Route: 048
     Dates: start: 20241122, end: 20241127
  2. CYTARABINE [Suspect]
     Active Substance: CYTARABINE
     Indication: Leukaemia
     Dosage: 0.03 GRAM?FOR INJECTION
     Route: 041
     Dates: start: 20241122, end: 20241127

REACTIONS (1)
  - Myelosuppression [Recovering/Resolving]

NARRATIVE: CASE EVENT DATE: 20250109
